FAERS Safety Report 13549282 (Version 1)
Quarter: 2017Q2

REPORT INFORMATION
  Report Type: Spontaneous
  Country: US (occurrence: US)
  Receive Date: 20170515
  Receipt Date: 20170515
  Transmission Date: 20170830
  Serious: No
  Sender: FDA-Public Use
  Company Number: None

PATIENT
  Age: 64 Year
  Sex: Female
  Weight: 48.15 kg

DRUGS (7)
  1. E [Concomitant]
  2. GENERAL MUTI [Concomitant]
  3. RECLAST [Suspect]
     Active Substance: ZOLEDRONIC ACID
     Indication: OSTEOPOROSIS
     Dosage: QUANTITY:1 INJECTION(S);OTHER FREQUENCY:ANNUAL INFUSION;?
     Route: 042
     Dates: start: 20170503
  4. VITAMIN D [Concomitant]
     Active Substance: CHOLECALCIFEROL
  5. CALCIUM [Concomitant]
     Active Substance: CALCIUM
  6. VITAMIN B12 [Concomitant]
     Active Substance: CYANOCOBALAMIN
  7. K-2 [Concomitant]

REACTIONS (11)
  - Hyperhidrosis [None]
  - Chills [None]
  - Chest pain [None]
  - Migraine [None]
  - Nausea [None]
  - Renal impairment [None]
  - Myalgia [None]
  - Fatigue [None]
  - Dyspnoea [None]
  - Chromaturia [None]
  - Arthralgia [None]

NARRATIVE: CASE EVENT DATE: 20170504
